FAERS Safety Report 6254874-2 (Version None)
Quarter: 2009Q3

REPORT INFORMATION
  Report Type: 
  Country: None (occurrence: None)
  Receive Date: 20090702
  Receipt Date: 20090625
  Transmission Date: 20100115
  Serious: Yes (Hospitalization)
  Sender: FDA-Public Use
  Company Number: ES-AVENTIS-200916398GDDC

PATIENT
  Age: 45 Year
  Sex: Male

DRUGS (4)
  1. ARAVA [Suspect]
     Indication: ARTHROPATHY
     Route: 048
     Dates: start: 20030101, end: 20080701
  2. OMEPRAZOLE [Concomitant]
     Indication: DYSPEPSIA
     Route: 048
  3. IBUPROFEN TABLETS [Concomitant]
     Indication: ABDOMINAL PAIN
     Dates: start: 20090101
  4. METHYLPREDNISOLONE [Concomitant]
     Indication: PSORIASIS
     Dosage: DOSE: 0.1%
     Route: 061
     Dates: start: 20090201

REACTIONS (1)
  - LIPOMATOSIS [None]
